FAERS Safety Report 12462727 (Version 2)
Quarter: 2016Q3

REPORT INFORMATION
  Report Type: Spontaneous
  Country: US (occurrence: US)
  Receive Date: 20160614
  Receipt Date: 20160902
  Transmission Date: 20161109
  Serious: No
  Sender: FDA-Public Use
  Company Number: US-JNJFOC-20160504767

PATIENT
  Sex: Male
  Weight: 110.22 kg

DRUGS (9)
  1. INVOKANA [Suspect]
     Active Substance: CANAGLIFLOZIN
     Indication: DIABETES MELLITUS
     Route: 048
     Dates: start: 20160329
  2. TAMSULOSIN [Concomitant]
     Active Substance: TAMSULOSIN
     Dosage: AS NEEDED
     Route: 048
  3. MOBIC [Concomitant]
     Active Substance: MELOXICAM
     Indication: PAIN
     Route: 048
  4. SERTRALINE [Concomitant]
     Active Substance: SERTRALINE HYDROCHLORIDE
     Indication: NEUROPATHY PERIPHERAL
     Route: 048
  5. METOPROLOL TARTRATE. [Concomitant]
     Active Substance: METOPROLOL TARTRATE
     Indication: CARDIAC DISORDER
     Dosage: 50 MG STRENGTH AND HALF PILL DOSAGE
     Route: 048
  6. OXYBUTYNIN [Concomitant]
     Active Substance: OXYBUTYNIN
     Route: 048
  7. PRAVACHOL [Concomitant]
     Active Substance: PRAVASTATIN SODIUM
     Indication: BLOOD CHOLESTEROL INCREASED
     Dosage: BEDTIME
     Route: 048
  8. BABY ASPIRIN [Concomitant]
     Active Substance: ASPIRIN
     Indication: CARDIAC DISORDER
     Dosage: ONE TABLET AT BEDTIME
     Route: 048
  9. HYDROCHLOROTHIAZIDE AND LISINOPRIL [Concomitant]
     Active Substance: HYDROCHLOROTHIAZIDE\LISINOPRIL
     Indication: HYPERTENSION
     Dosage: 20/25 MG
     Route: 048

REACTIONS (2)
  - Weight decreased [Unknown]
  - Blood glucose increased [Not Recovered/Not Resolved]
